FAERS Safety Report 7618943-4 (Version None)
Quarter: 2011Q3

REPORT INFORMATION
  Report Type: 
  Country: None (occurrence: None)
  Receive Date: 20110718
  Receipt Date: 20110713
  Transmission Date: 20111222
  Serious: Yes (Other)
  Sender: FDA-Public Use
  Company Number: US-AMGEN-USASP2011035696

PATIENT
  Age: 70 Year
  Sex: Male

DRUGS (6)
  1. NEUPOGEN [Suspect]
     Indication: CHEMOTHERAPY
     Dates: start: 20110101, end: 20110101
  2. GEMZAR [Concomitant]
     Dates: start: 20110101, end: 20110101
  3. CARBOPLATIN [Concomitant]
     Dates: start: 20110101
  4. NEULASTA [Suspect]
     Indication: CHEMOTHERAPY
     Dosage: 6 MG, Q3WK
     Dates: start: 20110101
  5. CISPLATIN [Concomitant]
     Dates: start: 20110101, end: 20110101
  6. PACLITAXEL [Concomitant]
     Dates: start: 20110101

REACTIONS (8)
  - THROMBOSIS [None]
  - PYREXIA [None]
  - ARTHRALGIA [None]
  - NEUTROPHIL COUNT DECREASED [None]
  - FATIGUE [None]
  - BONE PAIN [None]
  - ALOPECIA [None]
  - FEELING ABNORMAL [None]
